FAERS Safety Report 23963415 (Version 2)
Quarter: 2024Q4

REPORT INFORMATION
  Report Type: Spontaneous
  Country: FR (occurrence: FR)
  Receive Date: 20240611
  Receipt Date: 20241227
  Transmission Date: 20250115
  Serious: Yes (Hospitalization)
  Sender: TEVA
  Company Number: None

PATIENT
  Age: 88 Year
  Sex: Female
  Weight: 51.7 kg

DRUGS (2)
  1. LEFLUNOMIDE [Suspect]
     Active Substance: LEFLUNOMIDE
     Indication: Rheumatoid arthritis
     Route: 048
     Dates: start: 20240402, end: 20240506
  2. ATOVAQUONE [Suspect]
     Active Substance: ATOVAQUONE
     Indication: Pneumocystis jirovecii pneumonia
     Route: 048
     Dates: start: 20240309, end: 20240506

REACTIONS (1)
  - Extremity necrosis [Recovered/Resolved]

NARRATIVE: CASE EVENT DATE: 20240505
